FAERS Safety Report 10134795 (Version 1)
Quarter: 2014Q2

REPORT INFORMATION
  Report Type: Spontaneous
  Country: JP (occurrence: JP)
  Receive Date: 20140428
  Receipt Date: 20140428
  Transmission Date: 20141212
  Serious: Yes (Life-Threatening, Other)
  Sender: FDA-Public Use
  Company Number: JP-WATSON-2014-08252

PATIENT
  Sex: Male

DRUGS (9)
  1. CYCLOPHOSPHAMIDE (UNKNOWN) [Suspect]
     Indication: ACUTE LYMPHOCYTIC LEUKAEMIA
     Dosage: 1800 MG, DAILY, DAY 1
     Route: 064
  2. VINCRISTINE (UNKNOWN) [Suspect]
     Indication: ACUTE LYMPHOCYTIC LEUKAEMIA
     Dosage: 1.9 MG, DAILY, DAY 1,8,15,22
     Route: 064
  3. PREDNISOLONE (UNKNOWN) [Suspect]
     Indication: ACUTE LYMPHOCYTIC LEUKAEMIA
     Dosage: 90 MG, DAILY, DAYS 2-12 AND TAPERED WITHIN 9 DAYS
     Route: 064
  4. VANCOMYCIN HCL (WATSON LABORATORIES) [Suspect]
     Indication: FEBRILE NEUTROPENIA
     Dosage: UNK
     Route: 064
  5. MEROPENEM (UNKNOWN) [Suspect]
     Indication: FEBRILE NEUTROPENIA
     Dosage: UNK
     Route: 064
  6. DAUNORUBICIN [Suspect]
     Indication: ACUTE LYMPHOCYTIC LEUKAEMIA
     Dosage: 90 MG, DAILY,  DAY 1-3
     Route: 064
  7. POLYMYXIN B [Suspect]
     Indication: ANTIBIOTIC PROPHYLAXIS
     Dosage: UNK
     Route: 064
  8. AMPHOTERICIN B [Suspect]
     Indication: ANTIBIOTIC PROPHYLAXIS
     Dosage: UNK
     Route: 064
  9. FILGRASTIM [Suspect]
     Indication: PRODUCT USED FOR UNKNOWN INDICATION
     Dosage: UNK
     Route: 064

REACTIONS (2)
  - Neonatal respiratory distress syndrome [Recovered/Resolved]
  - Foetal exposure during pregnancy [Recovered/Resolved]
